FAERS Safety Report 4316733-1 (Version None)
Quarter: 2004Q1

REPORT INFORMATION
  Report Type: 
  Country: None (occurrence: None)
  Receive Date: 20040311
  Receipt Date: 20040227
  Transmission Date: 20041129
  Serious: Yes (Hospitalization)
  Sender: FDA-Public Use
  Company Number: JP-JNJFOC-20040200325

PATIENT
  Age: 64 Year
  Sex: Female

DRUGS (5)
  1. REMICADE [Suspect]
     Indication: RHEUMATOID ARTHRITIS
     Dosage: 3 MG/KG, 1 IN 1 AS NECESSARY, INTRAVENOUS DRIP (4 TIMES)
     Route: 041
     Dates: start: 20030819, end: 20030819
  2. REMICADE [Suspect]
     Indication: RHEUMATOID ARTHRITIS
     Dosage: 3 MG/KG, 1 IN 1 AS NECESSARY, INTRAVENOUS DRIP (4 TIMES)
     Route: 041
     Dates: start: 20030902, end: 20030902
  3. REMICADE [Suspect]
     Indication: RHEUMATOID ARTHRITIS
     Dosage: 3 MG/KG, 1 IN 1 AS NECESSARY, INTRAVENOUS DRIP (4 TIMES)
     Route: 041
     Dates: start: 20030930, end: 20030930
  4. REMICADE [Suspect]
     Indication: RHEUMATOID ARTHRITIS
     Dosage: 3 MG/KG, 1 IN 1 AS NECESSARY, INTRAVENOUS DRIP (4 TIMES)
     Route: 041
     Dates: start: 20031119, end: 20031119
  5. RHEUMATREX [Concomitant]

REACTIONS (6)
  - ABDOMINAL DISTENSION [None]
  - ANURIA [None]
  - BLOOD CREATININE DECREASED [None]
  - BODY TEMPERATURE INCREASED [None]
  - C-REACTIVE PROTEIN INCREASED [None]
  - PERITONEAL TUBERCULOSIS [None]
